FAERS Safety Report 14934388 (Version 1)
Quarter: 2018Q2

REPORT INFORMATION
  Report Type: Report from Study
  Country: FR (occurrence: FR)
  Receive Date: 20180524
  Receipt Date: 20180524
  Transmission Date: 20180711
  Serious: No
  Sender: FDA-Public Use
  Company Number: FR-CELLTRION INC.-2018FR019902

PATIENT

DRUGS (5)
  1. DESMOPRESSIN [Concomitant]
     Active Substance: DESMOPRESSIN
  2. HYDROCORTISONE. [Concomitant]
     Active Substance: HYDROCORTISONE
  3. INFLIXIMAB PFIZER (UNKNOWN) [Suspect]
     Active Substance: INFLIXIMAB
     Indication: COLITIS ULCERATIVE
     Dosage: 10 MG/KG, CYCLIC (EVERY 6 WEEKS)
     Route: 065
     Dates: start: 20161128
  4. LEVOTHYROXINE SODIUM STAT RX [Concomitant]
     Active Substance: LEVOTHYROXINE SODIUM
  5. NORDITROPINE [Concomitant]
     Active Substance: SOMATROPIN

REACTIONS (1)
  - Lung disorder [Recovered/Resolved]

NARRATIVE: CASE EVENT DATE: 20171231
